FAERS Safety Report 23432572 (Version 1)
Quarter: 2024Q1

REPORT INFORMATION
  Report Type: Spontaneous
  Country: US (occurrence: None)
  Receive Date: 20240123
  Receipt Date: 20240123
  Transmission Date: 20240410
  Serious: No
  Sender: FDA-Public Use
  Company Number: None

PATIENT
  Age: 62 Year
  Sex: Male
  Weight: 64.8 kg

DRUGS (2)
  1. FLUOROURACIL [Suspect]
     Active Substance: FLUOROURACIL
  2. CAPECITABINE (XELODA) [Concomitant]

REACTIONS (3)
  - Diarrhoea [None]
  - Refusal of treatment by patient [None]
  - Blood potassium decreased [None]

NARRATIVE: CASE EVENT DATE: 20240112
